FAERS Safety Report 17464752 (Version 2)
Quarter: 2020Q1

REPORT INFORMATION
  Report Type: Spontaneous
  Country: US (occurrence: US)
  Receive Date: 20200226
  Receipt Date: 20200312
  Transmission Date: 20200409
  Serious: Yes (Hospitalization)
  Sender: FDA-Public Use
  Company Number: US-PFIZER INC-2020082066

PATIENT
  Age: 70 Year
  Sex: Female
  Weight: 68.4 kg

DRUGS (2)
  1. MYCOBUTIN [Suspect]
     Active Substance: RIFABUTIN
     Dosage: 300 MG, UNK (3 TIMES A WEEK.)
     Route: 048
  2. MYCOBUTIN [Suspect]
     Active Substance: RIFABUTIN
     Indication: MYCOBACTERIUM AVIUM COMPLEX INFECTION
     Dosage: 2 DF, CYCLIC (TWO 150MG TABLETS MONDAY, WEDNESDAY, AND FRIDAY)
     Dates: start: 201904

REACTIONS (3)
  - Disease recurrence [Unknown]
  - Off label use [Unknown]
  - Malaise [Not Recovered/Not Resolved]
